FAERS Safety Report 6413918-5 (Version None)
Quarter: 2009Q4

REPORT INFORMATION
  Report Type: 
  Country: None (occurrence: None)
  Receive Date: 20091026
  Receipt Date: 20091019
  Transmission Date: 20100525
  Serious: Yes (Other)
  Sender: FDA-Public Use
  Company Number: DE-JNJFOC-20091006025

PATIENT
  Age: 68 Year
  Sex: Male

DRUGS (2)
  1. CAELYX [Suspect]
     Indication: ANGIOSARCOMA
     Dosage: 7 CYCLES
     Route: 042
  2. EVEROLIMUS [Suspect]
     Indication: ANGIOSARCOMA
     Route: 065

REACTIONS (2)
  - OFF LABEL USE [None]
  - SARCOMA [None]
